FAERS Safety Report 14480512 (Version 1)
Quarter: 2018Q1

REPORT INFORMATION
  Report Type: Spontaneous
  Country: HR (occurrence: HR)
  Receive Date: 20180202
  Receipt Date: 20180202
  Transmission Date: 20180509
  Serious: Yes (Other)
  Sender: FDA-Public Use
  Company Number: PHHY2018HR012532

PATIENT
  Age: 15 Year
  Sex: Female

DRUGS (1)
  1. IBUPROFEN. [Suspect]
     Active Substance: IBUPROFEN
     Indication: PRODUCT USED FOR UNKNOWN INDICATION
     Dosage: 9000 MG
     Route: 048

REACTIONS (2)
  - No adverse event [Unknown]
  - Suicide attempt [Unknown]

NARRATIVE: CASE EVENT DATE: 20171027
